FAERS Safety Report 11371018 (Version 1)
Quarter: 2015Q3

REPORT INFORMATION
  Report Type: Spontaneous
  Country: US (occurrence: None)
  Receive Date: 20150804
  Receipt Date: 20150804
  Transmission Date: 20151125
  Serious: Yes (Death)
  Sender: FDA-Public Use
  Company Number: 1053087-2015-00007

PATIENT
  Age: 43 Year
  Sex: Female
  Weight: 81.19 kg

DRUGS (2)
  1. SALINE [Concomitant]
     Active Substance: SODIUM CHLORIDE
  2. SODIUM CITRATE. [Suspect]
     Active Substance: SODIUM CITRATE
     Indication: APHERESIS
     Dosage: BAG / PROCEDURE / IV
     Route: 042
     Dates: start: 20150625

REACTIONS (2)
  - Myocardial infarction [None]
  - Chest pain [None]

NARRATIVE: CASE EVENT DATE: 20150626
